FAERS Safety Report 5117515-3 (Version None)
Quarter: 2006Q3

REPORT INFORMATION
  Report Type: 
  Country: None (occurrence: None)
  Receive Date: 20060929
  Receipt Date: 20051221
  Transmission Date: 20061208
  Serious: Yes (Other)
  Sender: FDA-Public Use
  Company Number: US-ROCHE-430018

PATIENT
  Age: 16 Year
  Sex: Female
  Weight: 57.2 kg

DRUGS (2)
  1. ACCUTANE [Suspect]
     Route: 048
     Dates: start: 19941115, end: 19950515
  2. ACCUTANE [Suspect]
     Route: 048
     Dates: start: 19950327, end: 19950815

REACTIONS (6)
  - COLITIS ULCERATIVE [None]
  - DEPRESSION [None]
  - INFLAMMATORY BOWEL DISEASE [None]
  - LEUKOCYTOCLASTIC VASCULITIS [None]
  - ROAD TRAFFIC ACCIDENT [None]
  - SUICIDAL IDEATION [None]
